FAERS Safety Report 9229340 (Version 3)
Quarter: 2013Q3

REPORT INFORMATION
  Report Type: Spontaneous
  Country: US (occurrence: US)
  Receive Date: 20130412
  Receipt Date: 20130919
  Transmission Date: 20140515
  Serious: Yes (Other)
  Sender: FDA-Public Use
  Company Number: US-ASTELLAS-2013US003225

PATIENT
  Age: 72 Year
  Sex: Female
  Weight: 54 kg

DRUGS (2)
  1. PROGRAF [Suspect]
     Indication: LIVER TRANSPLANT
     Dosage: 1.5 MG, BID
     Route: 048
     Dates: start: 20090128
  2. CELLCEPT                           /01275102/ [Concomitant]
     Indication: LIVER TRANSPLANT
     Dosage: 750 MG, BID
     Route: 048

REACTIONS (11)
  - Diabetes mellitus [Unknown]
  - Vomiting [Recovered/Resolved]
  - Intestinal obstruction [Unknown]
  - Urethral prolapse [Unknown]
  - Incisional hernia [Unknown]
  - Meniscus injury [Unknown]
  - Ligament rupture [Unknown]
  - Fall [Unknown]
  - Arthritis [Unknown]
  - Back disorder [Unknown]
  - Postoperative adhesion [Unknown]
